FAERS Safety Report 15262137 (Version 1)
Quarter: 2018Q3

REPORT INFORMATION
  Report Type: Other
  Country: JP (occurrence: JP)
  Receive Date: 20180809
  Receipt Date: 20180809
  Transmission Date: 20181010
  Serious: Yes (Other)
  Sender: FDA-Public Use
  Company Number: JP-ACTELION-A-CH2018-177045

PATIENT
  Age: 9 Month

DRUGS (3)
  1. TADALAFIL [Concomitant]
     Active Substance: TADALAFIL
  2. BERAPROST [Suspect]
     Active Substance: BERAPROST
     Indication: PULMONARY HYPERTENSION
     Dosage: 1 ?G/KG, QD
     Route: 042
  3. OPSUMIT [Suspect]
     Active Substance: MACITENTAN
     Indication: PULMONARY HYPERTENSION
     Route: 048

REACTIONS (2)
  - Adverse drug reaction [Unknown]
  - Patent ductus arteriosus repair [Unknown]
